FAERS Safety Report 7119681-7 (Version None)
Quarter: 2010Q4

REPORT INFORMATION
  Report Type: 
  Country: None (occurrence: None)
  Receive Date: 20101123
  Receipt Date: 20101112
  Transmission Date: 20110411
  Serious: Yes (Death)
  Sender: FDA-Public Use
  Company Number: US-CELGENEUS-163-21880-10112344

PATIENT
  Sex: Male

DRUGS (9)
  1. REVLIMID [Suspect]
     Indication: MULTIPLE MYELOMA
     Route: 048
     Dates: start: 20100513, end: 20100531
  2. ASPIRIN [Concomitant]
     Route: 065
  3. ISOSORBIDE DINITRATE [Concomitant]
     Route: 065
  4. CLARITIN [Concomitant]
     Route: 065
  5. LEVOTHROID [Concomitant]
     Route: 065
  6. FILGRASTIM [Concomitant]
     Route: 065
  7. PRILOSEC [Concomitant]
     Route: 065
  8. LOVASTATIN [Concomitant]
     Route: 065
  9. LEUPROLIDE ACETATE [Concomitant]
     Route: 030

REACTIONS (1)
  - DEATH [None]
